FAERS Safety Report 4395839-5 (Version None)
Quarter: 2004Q3

REPORT INFORMATION
  Report Type: 
  Country: None (occurrence: None)
  Receive Date: 20040712
  Receipt Date: 20040628
  Transmission Date: 20050211
  Serious: Yes (Hospitalization)
  Sender: FDA-Public Use
  Company Number: 2004SE02559

PATIENT
  Age: 80 Year
  Sex: Male

DRUGS (1)
  1. ROSUVASTATIN [Suspect]
     Indication: CARDIAC FAILURE
     Dates: start: 20040401, end: 20040502

REACTIONS (1)
  - CEREBRAL INFARCTION [None]
